FAERS Safety Report 18547576 (Version 2)
Quarter: 2021Q1

REPORT INFORMATION
  Report Type: Spontaneous
  Country: US (occurrence: US)
  Receive Date: 20201126
  Receipt Date: 20210114
  Transmission Date: 20210419
  Serious: No
  Sender: FDA-Public Use
  Company Number: NVSC2020US306376

PATIENT
  Sex: Female

DRUGS (1)
  1. BRIMONIDINE TARTRATE. [Suspect]
     Active Substance: BRIMONIDINE TARTRATE
     Indication: PRODUCT USED FOR UNKNOWN INDICATION
     Dosage: 1 DRP, TID (IN EACH EYE, 5 ML)
     Route: 065
     Dates: start: 20201022, end: 20201110

REACTIONS (2)
  - Product packaging quantity issue [Unknown]
  - Inappropriate schedule of product administration [Unknown]
